FAERS Safety Report 5786216-0 (Version None)
Quarter: 2008Q2

REPORT INFORMATION
  Report Type: 
  Country: None (occurrence: None)
  Receive Date: 20080624
  Receipt Date: 20070702
  Transmission Date: 20081010
  Serious: No
  Sender: FDA-Public Use
  Company Number: US-ASTRAZENECA-2007UW15603

PATIENT
  Age: 71 Year
  Sex: Female
  Weight: 108.9 kg

DRUGS (5)
  1. PULMICORT-100 [Suspect]
     Indication: DYSPNOEA
     Route: 055
     Dates: start: 20050101
  2. ALBUTEROL IPRATPROPIUM [Concomitant]
  3. COMBIVENT [Concomitant]
  4. VITAMIN [Concomitant]
  5. ASPIRIN [Concomitant]

REACTIONS (1)
  - FUNGAL INFECTION [None]
